FAERS Safety Report 4914537-X (Version None)
Quarter: 2006Q1

REPORT INFORMATION
  Report Type: 
  Country: None (occurrence: None)
  Receive Date: 20060216
  Receipt Date: 20060127
  Transmission Date: 20060701
  Serious: Yes (Hospitalization)
  Sender: FDA-Public Use
  Company Number: US-MERCK-0601USA03541

PATIENT
  Age: 57 Year
  Sex: Female
  Weight: 109 kg

DRUGS (11)
  1. VIOXX [Suspect]
     Indication: ARTHRITIS
     Route: 048
     Dates: start: 20030424, end: 20040930
  2. PAXIL [Concomitant]
     Route: 065
  3. LOPRESSOR [Concomitant]
     Route: 065
  4. PLAVIX [Concomitant]
     Route: 065
  5. ASPIRIN [Concomitant]
     Route: 065
  6. ASPIRIN [Concomitant]
     Route: 065
  7. IMDUR [Concomitant]
     Route: 065
  8. PERCOCET [Concomitant]
     Route: 065
  9. ZOCOR [Concomitant]
     Route: 065
  10. NICOTINE [Concomitant]
     Route: 065
  11. ASPIRIN [Concomitant]
     Route: 065

REACTIONS (4)
  - ANGINA UNSTABLE [None]
  - BUNDLE BRANCH BLOCK LEFT [None]
  - CORONARY ARTERY DISEASE [None]
  - PNEUMONIA [None]
